FAERS Safety Report 14337065 (Version 4)
Quarter: 2019Q2

REPORT INFORMATION
  Report Type: Report from Study
  Country: US (occurrence: US)
  Receive Date: 20171229
  Receipt Date: 20190502
  Transmission Date: 20190711
  Serious: Yes (Death, Hospitalization)
  Sender: FDA-Public Use
  Company Number: US-PFIZER INC-2016531574

PATIENT
  Age: 61 Year
  Sex: Female
  Weight: 86.18 kg

DRUGS (7)
  1. IBRANCE [Suspect]
     Active Substance: PALBOCICLIB
     Dosage: 75 MG, 1X/DAY
  2. FEMARA [Suspect]
     Active Substance: LETROZOLE
     Dosage: UNK
     Dates: start: 20170326
  3. IBRANCE [Suspect]
     Active Substance: PALBOCICLIB
     Dosage: 100 MG, DAILY
     Route: 048
     Dates: start: 20170326
  4. IBRANCE [Suspect]
     Active Substance: PALBOCICLIB
     Dosage: 100 MG, DAILY
     Route: 048
     Dates: start: 20170210, end: 20170306
  5. IBRANCE [Suspect]
     Active Substance: PALBOCICLIB
     Dosage: 75 MG, CYCLIC (ONCE A DAY, BY MOUTH FOR 21 DAYS, OFF SEVEN)
     Route: 048
     Dates: start: 2017, end: 201801
  6. IBRANCE [Suspect]
     Active Substance: PALBOCICLIB
     Dosage: 125 MG, DAILY
     Route: 048
     Dates: start: 20161101, end: 201701
  7. IBRANCE [Suspect]
     Active Substance: PALBOCICLIB
     Indication: BREAST CANCER METASTATIC
     Dosage: UNK
     Dates: start: 201610

REACTIONS (20)
  - Platelet count decreased [Recovered/Resolved]
  - Death [Fatal]
  - Clostridium difficile infection [Unknown]
  - Fall [Unknown]
  - Contusion [Unknown]
  - Hair disorder [Not Recovered/Not Resolved]
  - Gait disturbance [Recovering/Resolving]
  - Dysphonia [Unknown]
  - Alopecia [Unknown]
  - White blood cell count decreased [Not Recovered/Not Resolved]
  - Full blood count decreased [Not Recovered/Not Resolved]
  - Asthenia [Unknown]
  - Pyrexia [Recovered/Resolved]
  - Viral infection [Recovered/Resolved]
  - Memory impairment [Unknown]
  - Dehydration [Unknown]
  - Fatigue [Recovering/Resolving]
  - Nausea [Recovering/Resolving]
  - Urinary tract infection [Unknown]
  - Eye movement disorder [Unknown]

NARRATIVE: CASE EVENT DATE: 2016
